FAERS Safety Report 7480778-3 (Version None)
Quarter: 2011Q2

REPORT INFORMATION
  Report Type: 
  Country: None (occurrence: None)
  Receive Date: 20110516
  Receipt Date: 20110512
  Transmission Date: 20111010
  Serious: Yes (Hospitalization)
  Sender: FDA-Public Use
  Company Number: FR-BAYER-2011-041030

PATIENT
  Age: 68 Year
  Sex: Female
  Weight: 62 kg

DRUGS (7)
  1. ZANIDIP [Concomitant]
     Dosage: 10 MG, QD
     Dates: start: 20081102
  2. ZOPICLONE [Concomitant]
     Dosage: 7.5 MG, QD
     Dates: start: 20081102
  3. VALSARTAN [Concomitant]
     Dosage: 40 MG, QD
     Dates: start: 20081102
  4. MEDFORMINE [Concomitant]
     Dosage: 1700 MG, QD
     Dates: start: 20081102
  5. DEPAKENE [Concomitant]
     Dosage: 500 MG, QD
     Dates: start: 20081102
  6. PHENOBARBITAL TAB [Concomitant]
     Dosage: 100 MG, QD
     Dates: start: 20081102
  7. NEXAVAR [Suspect]
     Indication: HEPATIC NEOPLASM MALIGNANT
     Dosage: 800 MG, QD
     Route: 048
     Dates: start: 20100226, end: 20100304

REACTIONS (1)
  - GASTROINTESTINAL HAEMORRHAGE [None]
